FAERS Safety Report 18056110 (Version 2)
Quarter: 2020Q4

REPORT INFORMATION
  Report Type: Spontaneous
  Country: DE (occurrence: DE)
  Receive Date: 20200722
  Receipt Date: 20201102
  Transmission Date: 20210113
  Serious: Yes (Other)
  Sender: FDA-Public Use
  Company Number: DE-JNJFOC-20200717624

PATIENT
  Age: 47 Year
  Sex: Male

DRUGS (3)
  1. VERMOX [Suspect]
     Active Substance: MEBENDAZOLE
     Indication: ENTEROBIASIS
     Route: 048
     Dates: start: 202002
  2. VERMOX [Suspect]
     Active Substance: MEBENDAZOLE
     Route: 048
  3. HELMEX /00301402/ [Suspect]
     Active Substance: PYRANTEL PAMOATE
     Indication: ENTEROBIASIS
     Route: 065

REACTIONS (1)
  - Lipase increased [Recovering/Resolving]
